FAERS Safety Report 6261486-3 (Version None)
Quarter: 2009Q3

REPORT INFORMATION
  Report Type: 
  Country: None (occurrence: None)
  Receive Date: 20090709
  Receipt Date: 20090625
  Transmission Date: 20100115
  Serious: Yes (Other)
  Sender: FDA-Public Use
  Company Number: BR-PFIZER INC-2009232043

PATIENT
  Age: 35 Year

DRUGS (2)
  1. DEPO-PROVERA [Suspect]
     Indication: CONTRACEPTION
     Dosage: 150 MG, EVERY THREE MONTHS
     Dates: start: 20080901
  2. CIPROFLOXACIN [Suspect]
     Indication: URINARY TRACT INFECTION
     Dosage: 500 MG, 2X/DAY
     Dates: start: 20090624

REACTIONS (6)
  - AMENORRHOEA [None]
  - CONDITION AGGRAVATED [None]
  - CYST [None]
  - PAIN [None]
  - URINARY TRACT INFECTION [None]
  - WEIGHT INCREASED [None]
